FAERS Safety Report 7348854-3 (Version None)
Quarter: 2011Q1

REPORT INFORMATION
  Report Type: 
  Country: None (occurrence: None)
  Receive Date: 20110314
  Receipt Date: 20110310
  Transmission Date: 20110831
  Serious: Yes (Other)
  Sender: FDA-Public Use
  Company Number: IE-ABBOTT-11P-229-0702901-00

PATIENT
  Sex: Male

DRUGS (2)
  1. HUMIRA [Suspect]
     Route: 058
  2. HUMIRA [Suspect]
     Indication: PSORIASIS
     Route: 058
     Dates: start: 20101112

REACTIONS (13)
  - PRURITUS [None]
  - NEOPLASM MALIGNANT [None]
  - NAUSEA [None]
  - DECREASED APPETITE [None]
  - YELLOW SKIN [None]
  - GASTRITIS [None]
  - FAECES PALE [None]
  - FATIGUE [None]
  - OCULAR ICTERUS [None]
  - SKIN IRRITATION [None]
  - DIARRHOEA [None]
  - CHROMATURIA [None]
  - RASH [None]
